FAERS Safety Report 9021878 (Version 1)
Quarter: 2013Q1

REPORT INFORMATION
  Report Type: Spontaneous
  Country: US (occurrence: US)
  Receive Date: 20130118
  Receipt Date: 20130118
  Transmission Date: 20140127
  Serious: No
  Sender: FDA-Public Use
  Company Number: US-VERTEX PHARMACEUTICALS INC.-2013-000743

PATIENT
  Age: 57 None
  Sex: Female
  Weight: 75 kg

DRUGS (6)
  1. INCIVEK [Suspect]
     Indication: HEPATITIS C
     Dosage: UNK
     Route: 048
     Dates: start: 20120127, end: 201202
  2. INCIVEK [Suspect]
     Dosage: 750 MG, TID
     Route: 048
     Dates: start: 20121116
  3. PEGINTRON                          /01543001/ [Suspect]
     Dosage: UNK
     Dates: start: 20120127, end: 201202
  4. PEGINTRON                          /01543001/ [Suspect]
     Dosage: 120 ?G, QW
     Route: 058
     Dates: start: 20121116
  5. RIBAPAK [Suspect]
     Indication: HEPATITIS C
     Dosage: UNK
     Dates: start: 20120127, end: 201202
  6. RIBAPAK [Suspect]
     Dosage: 600 MG AM, 400 MG PM
     Route: 048
     Dates: start: 20121116

REACTIONS (4)
  - Decreased appetite [Recovered/Resolved]
  - Feeling abnormal [Recovered/Resolved]
  - Anaemia [Not Recovered/Not Resolved]
  - Diarrhoea [Recovered/Resolved]
